FAERS Safety Report 20455759 (Version 3)
Quarter: 2022Q1

REPORT INFORMATION
  Report Type: Report from Study
  Country: CL (occurrence: CL)
  Receive Date: 20220210
  Receipt Date: 20220301
  Transmission Date: 20220423
  Serious: Yes (Death, Other)
  Sender: FDA-Public Use
  Company Number: CL-TAKEDA-2022TUS008250

PATIENT
  Age: 12 Year
  Sex: Male
  Weight: 31.2 kg

DRUGS (1)
  1. IDURSULFASE [Suspect]
     Active Substance: IDURSULFASE
     Indication: Mucopolysaccharidosis II
     Dosage: 0.5 MILLIGRAM/KILOGRAM
     Route: 042

REACTIONS (10)
  - Cardiac arrest [Fatal]
  - Acute respiratory failure [Fatal]
  - COVID-19 pneumonia [Fatal]
  - Respiratory failure [Recovering/Resolving]
  - Pleural effusion [Unknown]
  - Atelectasis [Unknown]
  - Condition aggravated [Unknown]
  - Subcutaneous emphysema [Unknown]
  - Infection [Unknown]
  - SARS-CoV-2 test positive [Unknown]

NARRATIVE: CASE EVENT DATE: 20220205
